FAERS Safety Report 6463062-6 (Version None)
Quarter: 2009Q4

REPORT INFORMATION
  Report Type: 
  Country: None (occurrence: None)
  Receive Date: 20091130
  Receipt Date: 20090413
  Transmission Date: 20100525
  Serious: Yes (Other)
  Sender: FDA-Public Use
  Company Number: US-AMGEN-QUU342774

PATIENT
  Sex: Female

DRUGS (2)
  1. ENBREL [Suspect]
     Indication: RHEUMATOID ARTHRITIS
     Route: 058
     Dates: start: 20010901
  2. METHOTREXATE [Concomitant]
     Route: 048

REACTIONS (3)
  - BREAST CANCER [None]
  - CYSTITIS [None]
  - OPEN WOUND [None]
